FAERS Safety Report 5251414-1 (Version None)
Quarter: 2007Q1

REPORT INFORMATION
  Report Type: 
  Country: None (occurrence: None)
  Receive Date: 20070228
  Receipt Date: 20060505
  Transmission Date: 20070707
  Serious: No
  Sender: FDA-Public Use
  Company Number: US-GLAXOSMITHKLINE-A0604520A

PATIENT
  Age: 63 Year
  Sex: Female

DRUGS (4)
  1. LAMICTAL [Suspect]
     Dosage: 50MG TWICE PER DAY
     Route: 048
     Dates: start: 20060407
  2. LITHIUM CARBONATE [Concomitant]
  3. LIPITOR [Concomitant]
  4. PRIMIDONE [Concomitant]

REACTIONS (2)
  - ANXIETY [None]
  - EMOTIONAL DISORDER [None]
